FAERS Safety Report 14475419 (Version 1)
Quarter: 2018Q1

REPORT INFORMATION
  Report Type: Spontaneous
  Country: US (occurrence: US)
  Receive Date: 20180131
  Receipt Date: 20180131
  Transmission Date: 20180509
  Serious: Yes (Life-Threatening)
  Sender: FDA-Public Use
  Company Number: None

PATIENT
  Age: 40 Year
  Sex: Male
  Weight: 90.8 kg

DRUGS (10)
  1. GABAPENTIN. [Concomitant]
     Active Substance: GABAPENTIN
  2. MICAFUNGIN [Concomitant]
     Active Substance: MICAFUNGIN
  3. ONDANSETRON [Concomitant]
     Active Substance: ONDANSETRON
  4. MEROPENEM. [Suspect]
     Active Substance: MEROPENEM
     Indication: ABDOMINAL INFECTION
     Dosage: OTHER FREQUENCY:ONE TIME DOSE;?
     Route: 042
     Dates: start: 20171221, end: 20171221
  5. VANCOMYCIN [Concomitant]
     Active Substance: VANCOMYCIN
  6. FAT EMULSION 20% [Concomitant]
  7. FENTANYL. [Concomitant]
     Active Substance: FENTANYL
  8. HEPARIN [Concomitant]
     Active Substance: HEPARIN SODIUM
  9. LORAZEPAM. [Concomitant]
     Active Substance: LORAZEPAM
  10. ZOSYN [Concomitant]
     Active Substance: PIPERACILLIN SODIUM\TAZOBACTAM SODIUM

REACTIONS (3)
  - Tachycardia [None]
  - Urticaria [None]
  - Nausea [None]

NARRATIVE: CASE EVENT DATE: 20171221
